FAERS Safety Report 17008787 (Version 1)
Quarter: 2019Q4

REPORT INFORMATION
  Report Type: Spontaneous
  Country: US (occurrence: US)
  Receive Date: 20191108
  Receipt Date: 20191108
  Transmission Date: 20200122
  Serious: No
  Sender: FDA-Public Use
  Company Number: US-IPSEN BIOPHARMACEUTICALS, INC.-2019-20116

PATIENT
  Sex: Female

DRUGS (1)
  1. DYSPORT [Suspect]
     Active Substance: ABOBOTULINUMTOXINA
     Indication: SKIN COSMETIC PROCEDURE
     Dosage: DOSE NOT REPORTED
     Route: 065
     Dates: start: 20191030, end: 20191030

REACTIONS (3)
  - Accidental exposure to product [Unknown]
  - Ocular discomfort [Unknown]
  - Foreign body sensation in eyes [Unknown]

NARRATIVE: CASE EVENT DATE: 20191030
